FAERS Safety Report 9146818 (Version 3)
Quarter: 2013Q2

REPORT INFORMATION
  Report Type: Report from Study
  Country: IL (occurrence: IL)
  Receive Date: 20130307
  Receipt Date: 20130409
  Transmission Date: 20140414
  Serious: Yes (Hospitalization)
  Sender: FDA-Public Use
  Company Number: IL-ROCHE-1195041

PATIENT
  Age: 59 Year
  Sex: Female
  Weight: 115 kg

DRUGS (10)
  1. TOCILIZUMAB [Suspect]
     Indication: RHEUMATOID ARTHRITIS
     Route: 042
     Dates: start: 20120912
  2. CILAZAPRIL [Concomitant]
     Indication: HYPERTENSION
     Route: 048
     Dates: start: 20130222
  3. FOLIC ACID [Concomitant]
     Indication: RHEUMATOID ARTHRITIS
     Route: 048
     Dates: start: 20130222
  4. OMEPRADEX [Concomitant]
     Indication: GASTROOESOPHAGEAL REFLUX DISEASE
     Route: 048
     Dates: start: 20130222
  5. NORMALOL [Concomitant]
     Indication: HYPERTENSION
     Route: 048
     Dates: start: 20130222
  6. TRIBEMIN [Concomitant]
     Route: 048
     Dates: start: 20130222
  7. PREDNISONE [Concomitant]
     Indication: RHEUMATOID ARTHRITIS
     Route: 048
  8. MTX [Concomitant]
     Indication: RHEUMATOID ARTHRITIS
     Route: 048
  9. PLAQUENIL [Concomitant]
     Indication: RHEUMATOID ARTHRITIS
     Route: 048
  10. PARACETAMOL [Concomitant]

REACTIONS (8)
  - Urinary tract infection [Not Recovered/Not Resolved]
  - Microcytic anaemia [Not Recovered/Not Resolved]
  - Asthenia [Recovered/Resolved]
  - Pyrexia [Unknown]
  - Back pain [Unknown]
  - Rectal haemorrhage [Unknown]
  - Chills [Unknown]
  - Chest pain [Unknown]
